FAERS Safety Report 8818847 (Version 2)
Quarter: 2012Q4

REPORT INFORMATION
  Report Type: 
  Country: SE (occurrence: SE)
  Receive Date: 20121001
  Receipt Date: 20121106
  Transmission Date: 20130627
  Serious: Yes (Other)
  Sender: FDA-Public Use
  Company Number: PHHY2012SE084647

PATIENT
  Sex: Male

DRUGS (1)
  1. METHYLPHENIDATE [Suspect]

REACTIONS (2)
  - Vitiligo [Unknown]
  - Rash [Unknown]
